FAERS Safety Report 9031852 (Version 1)
Quarter: 2013Q1

REPORT INFORMATION
  Report Type: Spontaneous
  Country: US (occurrence: US)
  Receive Date: 20130124
  Receipt Date: 20130124
  Transmission Date: 20140127
  Serious: No
  Sender: FDA-Public Use
  Company Number: US-ELI_LILLY_AND_COMPANY-US201301004346

PATIENT
  Sex: Male

DRUGS (4)
  1. CIALIS [Suspect]
     Indication: ERECTILE DYSFUNCTION
     Dosage: 5 MG, QD
     Dates: start: 20130104
  2. METFORMIN [Concomitant]
     Dosage: 1 DF, UNKNOWN
  3. VITAMINS [Concomitant]
     Dosage: 1 DF, UNKNOWN
  4. VICTOZA [Concomitant]
     Dosage: 1.8 DF, UNKNOWN

REACTIONS (2)
  - Vision blurred [Unknown]
  - Dizziness [Unknown]
